FAERS Safety Report 17755779 (Version 1)
Quarter: 2020Q2

REPORT INFORMATION
  Report Type: Spontaneous
  Country: US (occurrence: US)
  Receive Date: 20200507
  Receipt Date: 20200507
  Transmission Date: 20200714
  Serious: No
  Sender: FDA-Public Use
  Company Number: US-SA-2020SA117825

PATIENT
  Age: 55 Year
  Sex: Female

DRUGS (1)
  1. DUPIXENT [Suspect]
     Active Substance: DUPILUMAB
     Dosage: 300 MG, QOW
     Route: 058
     Dates: start: 201907

REACTIONS (5)
  - Erythema of eyelid [Unknown]
  - Skin exfoliation [Unknown]
  - Eyelids pruritus [Unknown]
  - Eyelid irritation [Unknown]
  - Swelling of eyelid [Unknown]
